FAERS Safety Report 5499181-0 (Version None)
Quarter: 2007Q4

REPORT INFORMATION
  Report Type: 
  Country: None (occurrence: None)
  Receive Date: 20071026
  Receipt Date: 20071023
  Transmission Date: 20080405
  Serious: Yes (Life-Threatening)
  Sender: FDA-Public Use
  Company Number: JP-ASTRAZENECA-2007AP06048

PATIENT
  Age: 28246 Day
  Sex: Female
  Weight: 54 kg

DRUGS (13)
  1. DIPRIVAN [Suspect]
     Indication: INDUCTION OF ANAESTHESIA
     Route: 042
     Dates: start: 20070904, end: 20070904
  2. AMLODIPINE [Concomitant]
     Indication: HYPERTENSION
     Route: 048
  3. FAMOTIDINE [Concomitant]
     Route: 048
  4. GASTROM [Concomitant]
     Route: 048
  5. YORYACOOL [Concomitant]
     Route: 048
  6. CERCINE [Concomitant]
     Indication: ANAESTHETIC PREMEDICATION
     Route: 048
     Dates: start: 20070904, end: 20070904
  7. ATROPINE [Concomitant]
     Indication: INDUCTION OF ANAESTHESIA
     Route: 042
     Dates: start: 20070904, end: 20070904
  8. MUSCULAX [Concomitant]
     Indication: INDUCTION OF ANAESTHESIA
     Route: 042
     Dates: start: 20070904, end: 20070904
  9. SEVOFLURANE [Concomitant]
     Indication: INDUCTION OF ANAESTHESIA
     Route: 055
     Dates: start: 20070904, end: 20070904
  10. EPHEDRINE HYDROCHLORIDE [Concomitant]
     Indication: BLOOD PRESSURE DECREASED
     Route: 042
     Dates: start: 20070904, end: 20070904
  11. ATROPINE [Concomitant]
     Indication: BRADYCARDIA
     Route: 042
     Dates: start: 20070904, end: 20070904
  12. PREDOPA [Concomitant]
     Indication: BLOOD PRESSURE DECREASED
     Route: 042
     Dates: start: 20070904, end: 20070904
  13. NOR-ADRENALIN [Concomitant]
     Indication: BLOOD PRESSURE INCREASED
     Route: 042
     Dates: start: 20070904, end: 20070904

REACTIONS (2)
  - ACUTE MYOCARDIAL INFARCTION [None]
  - ATRIOVENTRICULAR BLOCK COMPLETE [None]
